FAERS Safety Report 4479032-3 (Version None)
Quarter: 2004Q4

REPORT INFORMATION
  Report Type: 
  Country: None (occurrence: None)
  Receive Date: 20041019
  Receipt Date: 20041014
  Transmission Date: 20050328
  Serious: Yes (Disabling)
  Sender: FDA-Public Use
  Company Number: ES-MERCK-0410ESP00058

PATIENT
  Age: 74 Year
  Sex: Female
  Weight: 52 kg

DRUGS (3)
  1. VIOXX [Suspect]
     Indication: OSTEOARTHRITIS
     Route: 048
     Dates: start: 20000101, end: 20040901
  2. CANDESARTAN CILEXETIL [Concomitant]
     Indication: HYPERTENSION
     Route: 065
     Dates: start: 20030101
  3. PRAVASTATIN SODIUM [Concomitant]
     Indication: HYPERCHOLESTEROLAEMIA
     Route: 065
     Dates: start: 20030101

REACTIONS (4)
  - BLOOD CREATININE INCREASED [None]
  - DEHYDRATION [None]
  - EPISTAXIS [None]
  - THROMBOSIS [None]
